FAERS Safety Report 5766190-3 (Version None)
Quarter: 2008Q2

REPORT INFORMATION
  Report Type: 
  Country: None (occurrence: None)
  Receive Date: 20080611
  Receipt Date: 20080602
  Transmission Date: 20081010
  Serious: Yes (Hospitalization)
  Sender: FDA-Public Use
  Company Number: US-ELI_LILLY_AND_COMPANY-US200806000329

PATIENT
  Sex: Female

DRUGS (6)
  1. FORTEO [Suspect]
     Indication: OSTEOPOROSIS
     Dosage: UNK, UNK
     Dates: start: 20070901
  2. FORTEO [Suspect]
     Dosage: UNK, UNK
     Dates: start: 20080518, end: 20080101
  3. FORTEO [Suspect]
     Dates: start: 20080602
  4. LASIX [Concomitant]
  5. COZAAR [Concomitant]
  6. COREG [Concomitant]

REACTIONS (4)
  - DEHYDRATION [None]
  - GASTRIC DISORDER [None]
  - GASTRITIS [None]
  - PNEUMONIA [None]
